FAERS Safety Report 22121434 (Version 1)
Quarter: 2023Q1

REPORT INFORMATION
  Report Type: Spontaneous
  Country: US (occurrence: None)
  Receive Date: 20230321
  Receipt Date: 20230321
  Transmission Date: 20230418
  Serious: Yes (Hospitalization)
  Sender: FDA-Public Use
  Company Number: None

PATIENT
  Sex: Male

DRUGS (1)
  1. ABIRATERONE [Suspect]
     Active Substance: ABIRATERONE
     Dosage: FREQUENCY : DAILY;?
     Route: 048

REACTIONS (8)
  - Feeling abnormal [None]
  - Localised infection [None]
  - Constipation [None]
  - Influenza [None]
  - Blood glucose increased [None]
  - Therapy interrupted [None]
  - Influenza [None]
  - Neoplasm malignant [None]
